FAERS Safety Report 21043964 (Version 1)
Quarter: 2022Q3

REPORT INFORMATION
  Report Type: Spontaneous
  Country: IN (occurrence: IN)
  Receive Date: 20220705
  Receipt Date: 20220705
  Transmission Date: 20221027
  Serious: Yes (Other)
  Sender: FDA-Public Use
  Company Number: IN-MACLEODS PHARMACEUTICALS US LTD-MAC2022036299

PATIENT

DRUGS (1)
  1. CLOBETASOL [Suspect]
     Active Substance: CLOBETASOL
     Indication: Skin lesion
     Dosage: 200 GRAM, SINGLE (TOTAL) (CREAM)
     Route: 061

REACTIONS (2)
  - Drug abuse [Recovered/Resolved]
  - Skin striae [Not Recovered/Not Resolved]
